FAERS Safety Report 25079997 (Version 2)
Quarter: 2025Q1

REPORT INFORMATION
  Report Type: Spontaneous
  Country: US (occurrence: US)
  Receive Date: 20250314
  Receipt Date: 20250317
  Transmission Date: 20250408
  Serious: Yes (Hospitalization)
  Sender: LUNDBECK
  Company Number: US-LUNDBECK-DKLU4012010

PATIENT
  Age: 6 Month
  Sex: Female
  Weight: 7.8925 kg

DRUGS (8)
  1. SABRIL [Suspect]
     Active Substance: VIGABATRIN
     Indication: Infantile spasms
     Dosage: DAY 1 TO 3
     Dates: start: 20250206
  2. SABRIL [Suspect]
     Active Substance: VIGABATRIN
     Dosage: DAY 4 TO 6
     Dates: start: 20250209
  3. SABRIL [Suspect]
     Active Substance: VIGABATRIN
     Dosage: DAY 7 AND THEREAFTER
     Dates: start: 20250212
  4. VIGABATRIN [Concomitant]
     Active Substance: VIGABATRIN
     Indication: Infantile spasms
  5. SIMETHICONE (DIMETHICONE) [Concomitant]
     Active Substance: DIMETHICONE
     Indication: Product used for unknown indication
  6. VIMPAT [Concomitant]
     Active Substance: LACOSAMIDE
     Indication: Product used for unknown indication
  7. ERGOCALCIFEROL [Concomitant]
     Active Substance: ERGOCALCIFEROL
     Indication: Product used for unknown indication
  8. KEPPRA [Concomitant]
     Active Substance: LEVETIRACETAM
     Indication: Product used for unknown indication

REACTIONS (1)
  - Seizure [Unknown]
